FAERS Safety Report 6428292-8 (Version None)
Quarter: 2009Q4

REPORT INFORMATION
  Report Type: 
  Country: None (occurrence: None)
  Receive Date: 20091105
  Receipt Date: 20090814
  Transmission Date: 20100525
  Serious: No
  Sender: FDA-Public Use
  Company Number: US-BAYER-200930734NA

PATIENT
  Age: 34 Year
  Sex: Male

DRUGS (1)
  1. MAGNEVIST [Suspect]
     Indication: BACK DISORDER
     Dates: start: 20090810, end: 20090810

REACTIONS (2)
  - BLISTER [None]
  - OROPHARYNGEAL BLISTERING [None]
